FAERS Safety Report 9951626 (Version 1)
Quarter: 2014Q1

REPORT INFORMATION
  Report Type: Report from Study
  Country: US (occurrence: US)
  Receive Date: 20140304
  Receipt Date: 20140304
  Transmission Date: 20141002
  Serious: No
  Sender: FDA-Public Use
  Company Number: US-ABBVIE-13P-163-1076163-00

PATIENT
  Sex: Male

DRUGS (2)
  1. HUMIRA [Suspect]
     Indication: PSORIASIS
     Dates: start: 201208, end: 201208
  2. HUMIRA [Suspect]
     Dosage: START 1 WEEK AFTER INITIAL DOSE
     Dates: start: 201208, end: 201301

REACTIONS (2)
  - Arthralgia [Recovered/Resolved]
  - Psoriasis [Recovered/Resolved]
